FAERS Safety Report 8115853-3 (Version None)
Quarter: 2012Q1

REPORT INFORMATION
  Report Type: 
  Country: None (occurrence: None)
  Receive Date: 20120206
  Receipt Date: 20120126
  Transmission Date: 20120608
  Serious: Yes (Other)
  Sender: FDA-Public Use
  Company Number: CA-JNJFOC-20120200836

PATIENT
  Sex: Male
  Weight: 79 kg

DRUGS (4)
  1. PLAQUENIL [Concomitant]
     Route: 065
  2. INDOMETHACIN [Concomitant]
     Route: 065
  3. REMICADE [Suspect]
     Indication: RHEUMATOID ARTHRITIS
     Route: 042
     Dates: start: 20060124
  4. ARAVA [Concomitant]
     Route: 065

REACTIONS (2)
  - TINEA PEDIS [None]
  - DIARRHOEA [None]
